FAERS Safety Report 5452144-3 (Version None)
Quarter: 2007Q3

REPORT INFORMATION
  Report Type: 
  Country: None (occurrence: None)
  Receive Date: 20070914
  Receipt Date: 20070910
  Transmission Date: 20080115
  Serious: Yes (Hospitalization)
  Sender: FDA-Public Use
  Company Number: PHBS2007NO14569

PATIENT
  Age: 38 Year
  Sex: Female

DRUGS (3)
  1. VOLTAREN [Suspect]
     Indication: PHARYNGOLARYNGEAL PAIN
     Dosage: 50 MG, BID
     Route: 048
     Dates: end: 20070721
  2. IBUPROFEN [Suspect]
     Indication: PHARYNGOLARYNGEAL PAIN
     Dosage: 1200 MG/DAY
     Route: 048
     Dates: end: 20070721
  3. DALACIN [Concomitant]
     Route: 048

REACTIONS (17)
  - AGRANULOCYTOSIS [None]
  - ANAEMIA [None]
  - BLOOD CREATININE INCREASED [None]
  - BLOOD IMMUNOGLOBULIN G INCREASED [None]
  - C-REACTIVE PROTEIN INCREASED [None]
  - CYTOMEGALOVIRUS ANTIBODY POSITIVE [None]
  - DYSPHAGIA [None]
  - GAMMA-GLUTAMYLTRANSFERASE INCREASED [None]
  - GENERAL PHYSICAL HEALTH DETERIORATION [None]
  - HAEMOGLOBIN DECREASED [None]
  - IRON BINDING CAPACITY TOTAL DECREASED [None]
  - JAW DISORDER [None]
  - PHARYNGOLARYNGEAL PAIN [None]
  - PLATELET COUNT INCREASED [None]
  - SERUM FERRITIN INCREASED [None]
  - TONSILLITIS [None]
  - VITAMIN B12 INCREASED [None]
